FAERS Safety Report 7622212-6 (Version None)
Quarter: 2011Q3

REPORT INFORMATION
  Report Type: 
  Country: None (occurrence: None)
  Receive Date: 20110720
  Receipt Date: 20110704
  Transmission Date: 20111222
  Serious: Yes (Life-Threatening)
  Sender: FDA-Public Use
  Company Number: CN-BAYER-2011-052808

PATIENT
  Age: 65 Year
  Sex: Female
  Weight: 45 kg

DRUGS (1)
  1. ULTRAVIST 150 [Suspect]
     Indication: ANGIOGRAM
     Dosage: UNK
     Dates: start: 20110615, end: 20110615

REACTIONS (8)
  - EYELID OEDEMA [None]
  - PALPITATIONS [None]
  - BLOOD PRESSURE DECREASED [None]
  - ERYTHEMA OF EYELID [None]
  - HYPERHIDROSIS [None]
  - CHEST PAIN [None]
  - DEPRESSION [None]
  - HEART RATE DECREASED [None]
